FAERS Safety Report 4465138-1 (Version None)
Quarter: 2004Q3

REPORT INFORMATION
  Report Type: 
  Country: None (occurrence: None)
  Receive Date: 20040928
  Receipt Date: 20040928
  Transmission Date: 20050211
  Serious: Yes (Hospitalization, Other)
  Sender: FDA-Public Use
  Company Number: None

PATIENT
  Sex: Female

DRUGS (10)
  1. FLUOROURACIL [Suspect]
     Indication: COLON CANCER
     Dosage: 748 MG ONCE INTRAVENOUS
     Route: 042
     Dates: start: 20040204, end: 20040204
  2. OXALIPLATIN [Suspect]
     Indication: COLON CANCER
     Dosage: 159 MG ONCE INTRAVENOUS
     Route: 042
     Dates: start: 20040204, end: 20040204
  3. ZOFRAN [Concomitant]
  4. COMPAZINE [Concomitant]
  5. LORAZEPAM [Concomitant]
  6. TRIHEXYPHENIDYL HCL [Concomitant]
  7. SERTRALINE HCL [Concomitant]
  8. FERROUS SULFATE TAB [Concomitant]
  9. QUETIAPINE [Concomitant]
  10. RANITIDINE [Concomitant]

REACTIONS (2)
  - DEHYDRATION [None]
  - VOMITING [None]
